FAERS Safety Report 9852630 (Version 1)
Quarter: 2014Q1

REPORT INFORMATION
  Report Type: Spontaneous
  Country: US (occurrence: US)
  Receive Date: 20140129
  Receipt Date: 20140129
  Transmission Date: 20141002
  Serious: No
  Sender: FDA-Public Use
  Company Number: US-GLAXOSMITHKLINE-A1048914A

PATIENT
  Age: 17 Year
  Sex: Male

DRUGS (3)
  1. MEPRON [Suspect]
     Indication: BABESIOSIS
     Dosage: 1TSP PER DAY
     Route: 048
     Dates: start: 201310
  2. LAMICTAL XR [Concomitant]
  3. AZITHROMYCIN [Concomitant]

REACTIONS (2)
  - Hypoaesthesia oral [Recovered/Resolved]
  - Off label use [Unknown]
